FAERS Safety Report 20874506 (Version 1)
Quarter: 2022Q2

REPORT INFORMATION
  Report Type: Spontaneous
  Country: US (occurrence: US)
  Receive Date: 20220525
  Receipt Date: 20220525
  Transmission Date: 20220720
  Serious: No
  Sender: FDA-Public Use
  Company Number: US-Vifor (International) Inc.-VIT-2022-02912

PATIENT
  Age: 61 Year
  Sex: Female

DRUGS (9)
  1. VELTASSA [Suspect]
     Active Substance: PATIROMER
     Indication: Hyperkalaemia
     Dosage: TO DISSOLVE CONTENTS OF ONE PACKET INTO 1/3 OF CUP OF WATER AND DRINK FULL AMOUNT ONCE DAILY.
     Route: 048
     Dates: start: 20210710
  2. VITAMIN D [Concomitant]
     Active Substance: VITAMIN D NOS
     Dosage: 400 UNIT UNSPECIFIED
  3. ATORVASTATIN [Concomitant]
     Active Substance: ATORVASTATIN
  4. EXEMESTANE [Concomitant]
     Active Substance: EXEMESTANE
  5. HYDRALAZINE [Concomitant]
     Active Substance: HYDRALAZINE HYDROCHLORIDE
  6. LOSARTAN [Concomitant]
     Active Substance: LOSARTAN
  7. OTEZLA [Concomitant]
     Active Substance: APREMILAST
  8. SIMPONI [Concomitant]
     Active Substance: GOLIMUMAB
  9. TREMFYA [Concomitant]
     Active Substance: GUSELKUMAB

REACTIONS (2)
  - Gout [Recovered/Resolved]
  - Product dose omission issue [Unknown]

NARRATIVE: CASE EVENT DATE: 20220401
